FAERS Safety Report 9305665 (Version 1)
Quarter: 2013Q2

REPORT INFORMATION
  Report Type: Spontaneous
  Country: FR (occurrence: FR)
  Receive Date: 20130523
  Receipt Date: 20130523
  Transmission Date: 20140414
  Serious: Yes (Other)
  Sender: FDA-Public Use
  Company Number: FR-PFIZER INC-2013156194

PATIENT
  Age: 36 Year
  Sex: Female

DRUGS (2)
  1. LYRICA [Suspect]
     Indication: PAIN
     Dosage: 25 MG
  2. LYRICA [Suspect]
     Dosage: 450 MG

REACTIONS (8)
  - Bone disorder [Unknown]
  - Nausea [Unknown]
  - Decreased appetite [Unknown]
  - Diarrhoea [Unknown]
  - Somnolence [Unknown]
  - Vomiting [Unknown]
  - Drug ineffective [Unknown]
  - Intentional drug misuse [Unknown]
